FAERS Safety Report 18476413 (Version 1)
Quarter: 2020Q4

REPORT INFORMATION
  Report Type: Spontaneous
  Country: US (occurrence: US)
  Receive Date: 20201106
  Receipt Date: 20201106
  Transmission Date: 20210114
  Serious: Yes (Death)
  Sender: FDA-Public Use
  Company Number: US-FRESENIUS MEDICAL CARE RENAL THERAPIES GROUP-FMC-2011-001326

PATIENT
  Sex: Male
  Weight: 110.8 kg

DRUGS (1)
  1. PHOSLO [Suspect]
     Active Substance: CALCIUM ACETATE
     Indication: HYPERPHOSPHATAEMIA
     Route: 048

REACTIONS (1)
  - Cardiac arrest [Fatal]
